FAERS Safety Report 9540751 (Version 1)
Quarter: 2013Q3

REPORT INFORMATION
  Report Type: Spontaneous
  Country: DE (occurrence: DE)
  Receive Date: 20130920
  Receipt Date: 20130920
  Transmission Date: 20140515
  Serious: Yes (Death)
  Sender: FDA-Public Use
  Company Number: DE-BAXTER-2012BAX008510

PATIENT
  Sex: Male

DRUGS (1)
  1. TISSUCOL-KIT 5,0 IMMUNO [Suspect]
     Indication: GASTROINTESTINAL FISTULA

REACTIONS (1)
  - Air embolism [Fatal]
